FAERS Safety Report 17892958 (Version 2)
Quarter: 2020Q3

REPORT INFORMATION
  Report Type: Spontaneous
  Country: AU (occurrence: AU)
  Receive Date: 20200613
  Receipt Date: 20200704
  Transmission Date: 20201103
  Serious: Yes (Death)
  Sender: FDA-Public Use
  Company Number: AU-MACLEODS PHARMACEUTICALS US LTD-MAC2020026778

PATIENT

DRUGS (6)
  1. OLANZAPINE 5 MG [Suspect]
     Active Substance: OLANZAPINE
     Indication: HALLUCINATION, VISUAL
  2. OLANZAPINE 5 MG [Suspect]
     Active Substance: OLANZAPINE
     Indication: HALLUCINATION, TACTILE
     Dosage: 5 MILLIGRAM, QD
     Route: 065
  3. OLANZAPINE 5 MG [Suspect]
     Active Substance: OLANZAPINE
     Indication: HALLUCINATION, AUDITORY
  4. HALOPERIDOL. [Suspect]
     Active Substance: HALOPERIDOL
     Indication: HALLUCINATION, TACTILE
     Dosage: 1 MILLIGRAM, BID
     Route: 058
  5. HYDROMORPHONE [Concomitant]
     Active Substance: HYDROMORPHONE
     Indication: CANCER PAIN
     Dosage: UNK
     Route: 065
     Dates: start: 2019
  6. LEVOMEPROMAZINE [Suspect]
     Active Substance: LEVOMEPROMAZINE
     Indication: HALLUCINATION, TACTILE
     Dosage: 12.5 MILLIGRAM, QD,  FOR 24 HOURS
     Route: 058

REACTIONS (4)
  - Death [Fatal]
  - Somnolence [Unknown]
  - Drug ineffective [Unknown]
  - Sedation [Unknown]
